FAERS Safety Report 18894906 (Version 1)
Quarter: 2021Q1

REPORT INFORMATION
  Report Type: Spontaneous
  Country: NO (occurrence: NO)
  Receive Date: 20210216
  Receipt Date: 20210216
  Transmission Date: 20210420
  Serious: Yes (Disabling)
  Sender: FDA-Public Use
  Company Number: NO-AMGEN-NORSP2021024527

PATIENT
  Age: 56 Year
  Sex: Female

DRUGS (1)
  1. AIMOVIG [Suspect]
     Active Substance: ERENUMAB-AOOE
     Indication: MIGRAINE PROPHYLAXIS
     Dosage: 70 MILLIGRAM (N02CD01 ? ERENUMAB) (DATE OF LAST ADMINISTRATION: OCT 2019)
     Route: 058
     Dates: start: 201811

REACTIONS (6)
  - Abdominal distension [Unknown]
  - Constipation [Recovered/Resolved]
  - Memory impairment [Unknown]
  - Apathy [Unknown]
  - Fatigue [Recovered/Resolved]
  - Feeling cold [Recovered/Resolved]

NARRATIVE: CASE EVENT DATE: 2018
